FAERS Safety Report 8159640-9 (Version None)
Quarter: 2012Q1

REPORT INFORMATION
  Report Type: 
  Country: None (occurrence: None)
  Receive Date: 20120223
  Receipt Date: 20120214
  Transmission Date: 20120608
  Serious: Yes (Hospitalization)
  Sender: FDA-Public Use
  Company Number: NO-ROCHE-1033334

PATIENT
  Sex: Female
  Weight: 103 kg

DRUGS (18)
  1. AVASTIN [Suspect]
     Indication: BREAST CANCER
     Dosage: LAST DOSE PRIOR TO SAE 19/DEC/2011
     Route: 042
     Dates: start: 20110802, end: 20120103
  2. EPIRUBICIN HYDROCHLORIDE [Suspect]
     Indication: BREAST CANCER
     Dosage: LAST DOSE PRIOR TO SAE 3/OCT/2011
     Route: 042
     Dates: start: 20110802
  3. PACLITAXEL [Suspect]
     Indication: BREAST CANCER
     Dosage: LAST DOSE PRIOR TO SAE 19/DEC/2011
     Route: 042
     Dates: start: 20111024, end: 20120103
  4. LOVAZA [Concomitant]
     Dates: start: 20110630
  5. MAGNESIUM [Concomitant]
     Dates: start: 20110630
  6. VITAMIN K TAB [Concomitant]
     Dates: start: 20110130
  7. CYCLOPHOSPHAMIDE [Suspect]
     Indication: BREAST CANCER
     Dosage: LAST DOSE PRIOR TO SAE 3/OCT/2011
     Route: 042
     Dates: start: 20110802
  8. ASCORBIC ACID [Concomitant]
     Dates: start: 20110630
  9. VITAMIN E [Concomitant]
     Dates: start: 20110630
  10. VITAMIN D [Concomitant]
     Dates: start: 20110130
  11. GLUCOSAMINE [Concomitant]
     Dates: start: 20090630
  12. NEXIUM [Concomitant]
     Dates: start: 20000630
  13. LEVOTHYROXINE SODIUM [Concomitant]
     Dates: start: 20110630
  14. ZINC SULFATE [Concomitant]
  15. TRIOBE [Concomitant]
     Dates: start: 20110630
  16. FLUOROURACIL [Suspect]
     Indication: BREAST CANCER
     Dosage: LAST DOSE PRIOR TO SAE 3/OCT/2011
     Route: 042
     Dates: start: 20110802
  17. LIOTHYRONIN [Concomitant]
     Dates: start: 20000630
  18. CALCIUM [Concomitant]
     Dates: start: 20110130

REACTIONS (2)
  - ATRIAL FIBRILLATION [None]
  - LEFT VENTRICULAR DYSFUNCTION [None]
